FAERS Safety Report 17223422 (Version 1)
Quarter: 2020Q1

REPORT INFORMATION
  Report Type: Report from Study
  Country: BD (occurrence: BD)
  Receive Date: 20200102
  Receipt Date: 20200102
  Transmission Date: 20200409
  Serious: Yes (Life-Threatening)
  Sender: FDA-Public Use
  Company Number: BD-ROCHE-2507510

PATIENT
  Age: 57 Year
  Sex: Female

DRUGS (3)
  1. NORTRIPTYLINE [Concomitant]
     Active Substance: NORTRIPTYLINE
     Route: 065
     Dates: start: 20191219
  2. RIVOTRIL [Concomitant]
     Active Substance: CLONAZEPAM
     Route: 065
  3. AVASTIN [Suspect]
     Active Substance: BEVACIZUMAB
     Indication: CERVIX CARCINOMA
     Route: 042
     Dates: start: 20180620, end: 2019

REACTIONS (5)
  - Insomnia [Recovering/Resolving]
  - Appetite disorder [Recovered/Resolved]
  - Irritability [Recovering/Resolving]
  - Suicidal ideation [Recovering/Resolving]
  - Decreased interest [Recovering/Resolving]
